FAERS Safety Report 7736610-3 (Version None)
Quarter: 2011Q3

REPORT INFORMATION
  Report Type: 
  Country: None (occurrence: None)
  Receive Date: 20110908
  Receipt Date: 20110901
  Transmission Date: 20111222
  Serious: Yes (Disabling, Other)
  Sender: FDA-Public Use
  Company Number: BR-SANOFI-AVENTIS-2010SA071554

PATIENT
  Age: 64 Year
  Sex: Female
  Weight: 110 kg

DRUGS (6)
  1. ATENOLOL [Concomitant]
     Route: 048
  2. METFORMIN HCL [Concomitant]
     Indication: TYPE 2 DIABETES MELLITUS
     Route: 048
  3. NOVORAPID [Concomitant]
     Dosage: 3 INJECTIONS OF 15 IU DAILY
  4. LANTUS [Suspect]
     Dosage: 20 IU IN AM AND 20 IU AT NIGHT
     Route: 058
     Dates: start: 20040101
  5. OLMESARTAN MEDOXOMIL [Concomitant]
     Route: 048
  6. ASPIRIN [Concomitant]
     Indication: PROPHYLAXIS
     Route: 048

REACTIONS (11)
  - GANGRENE [None]
  - ONYCHOLYSIS [None]
  - OPEN WOUND [None]
  - BLINDNESS [None]
  - ABDOMINAL PAIN [None]
  - HYPERGLYCAEMIA [None]
  - EYE HAEMORRHAGE [None]
  - ABASIA [None]
  - BONE PAIN [None]
  - RETCHING [None]
  - MUSCULAR WEAKNESS [None]
